FAERS Safety Report 14518456 (Version 3)
Quarter: 2018Q1

REPORT INFORMATION
  Report Type: Spontaneous
  Country: ES (occurrence: ES)
  Receive Date: 20180212
  Receipt Date: 20180226
  Transmission Date: 20180509
  Serious: Yes (Death)
  Sender: FDA-Public Use
  Company Number: ES-HQ SPECIALTY-ES-2018INT000018

PATIENT
  Age: 67 Year
  Sex: Male
  Weight: 90 kg

DRUGS (7)
  1. THIAMINE. [Concomitant]
     Active Substance: THIAMINE
     Indication: ALCOHOLISM
     Dosage: 300 MG, 24 H
     Route: 042
     Dates: start: 20180110, end: 20180112
  2. NORADRENALINE                      /00127501/ [Concomitant]
     Active Substance: NOREPINEPHRINE
     Indication: HYPOTENSION
     Dosage: CONTINUOUS INFUSION, DAILY DOSE 0.2 MCG/KG/H
     Route: 042
     Dates: start: 20180110, end: 20180112
  3. AZITHROMYCIN ANHYDROUS. [Concomitant]
     Active Substance: AZITHROMYCIN ANHYDROUS
     Indication: INFECTION
     Dosage: 500 MG, 24 H
     Route: 042
     Dates: start: 20180110, end: 20180112
  4. CEFTRIAXONE. [Concomitant]
     Active Substance: CEFTRIAXONE
     Indication: INFECTION
     Dosage: 2 G, 24 H
     Route: 042
     Dates: start: 20180110, end: 20180112
  5. AMIODARONE [Concomitant]
     Active Substance: AMIODARONE
     Indication: ATRIAL FIBRILLATION
     Dosage: CONTINUOUS INFUSION (600 MG)
     Route: 042
     Dates: start: 20180110, end: 20180112
  6. PANTOPRAZOLE [Concomitant]
     Active Substance: PANTOPRAZOLE
     Indication: STRESS ULCER
     Dosage: 40 MG, 24 H
     Route: 042
     Dates: start: 20180111, end: 20180112
  7. DEXMEDETOMIDINE HYDROCHLORIDE. [Suspect]
     Active Substance: DEXMEDETOMIDINE HYDROCHLORIDE
     Indication: PRODUCT USED FOR UNKNOWN INDICATION
     Dosage: CONTINUOUS INFUSION; 0.5 ? 1.3 MCG/KG/H
     Route: 042
     Dates: start: 20180111, end: 20180112

REACTIONS (1)
  - Hyperthermia malignant [Fatal]

NARRATIVE: CASE EVENT DATE: 20180111
